FAERS Safety Report 20968824 (Version 1)
Quarter: 2022Q2

REPORT INFORMATION
  Report Type: Report from Study
  Country: CO (occurrence: CO)
  Receive Date: 20220616
  Receipt Date: 20220616
  Transmission Date: 20220721
  Serious: Yes (Death, Hospitalization, Other)
  Sender: FDA-Public Use
  Company Number: CO-BRISTOL-MYERS SQUIBB COMPANY-2022-038175

PATIENT
  Age: 70 Year
  Weight: 53 kg

DRUGS (2)
  1. OPDIVO [Suspect]
     Active Substance: NIVOLUMAB
     Indication: Renal cancer
     Dosage: 480 MG/ML
     Route: 042
     Dates: start: 20210727, end: 20220117
  2. OPDIVO [Suspect]
     Active Substance: NIVOLUMAB
     Dosage: 480 MG/ML
     Route: 042
     Dates: start: 20210121, end: 20220117

REACTIONS (9)
  - Eye disorder [Recovering/Resolving]
  - Arthropathy [Recovering/Resolving]
  - Pyrexia [Unknown]
  - Dyspnoea [Unknown]
  - Decreased appetite [Recovered/Resolved]
  - Constipation [Recovered/Resolved]
  - Speech disorder [Recovered/Resolved]
  - Gait inability [Recovered/Resolved]
  - Death [Fatal]

NARRATIVE: CASE EVENT DATE: 20220502
